FAERS Safety Report 8841310 (Version 1)
Quarter: 2012Q4

REPORT INFORMATION
  Report Type: 
  Country: NO (occurrence: NO)
  Receive Date: 20121015
  Receipt Date: 20121015
  Transmission Date: 20130627
  Serious: Yes (Other)
  Sender: FDA-Public Use
  Company Number: NO-PFIZER INC-2012252568

PATIENT
  Sex: Female

DRUGS (2)
  1. ETHOSUXIMIDE [Suspect]
     Indication: EPILEPSY
     Route: 050
  2. TEGRETOL [Suspect]
     Indication: EPILEPSY
     Dosage: 1200 mg, daily
     Route: 050

REACTIONS (1)
  - Abortion spontaneous [Unknown]
